FAERS Safety Report 20553150 (Version 1)
Quarter: 2022Q1

REPORT INFORMATION
  Report Type: Spontaneous
  Country: US (occurrence: None)
  Receive Date: 20220304
  Receipt Date: 20220304
  Transmission Date: 20220423
  Serious: Yes (Hospitalization, Other)
  Sender: FDA-Public Use
  Company Number: None

PATIENT
  Age: 79 Year
  Sex: Female
  Weight: 93 kg

DRUGS (1)
  1. DAPTOMYCIN [Suspect]
     Active Substance: DAPTOMYCIN
     Indication: Enterococcal infection
     Dosage: OTHER STRENGTH : 250MGVIL;?FREQUENCY : DAILY;?
     Route: 042
     Dates: start: 20211216, end: 20211223

REACTIONS (3)
  - Eosinophilic pneumonia [None]
  - Gastrointestinal haemorrhage [None]
  - Hospice care [None]

NARRATIVE: CASE EVENT DATE: 20220116
